FAERS Safety Report 9263861 (Version 1)
Quarter: 2013Q2

REPORT INFORMATION
  Report Type: Spontaneous
  Country: DE (occurrence: DE)
  Receive Date: 20130430
  Receipt Date: 20130430
  Transmission Date: 20140414
  Serious: Yes (Death)
  Sender: FDA-Public Use
  Company Number: DE-TEVA-398866GER

PATIENT
  Age: 91 Year
  Sex: Female

DRUGS (18)
  1. CIPROFLOXACIN [Suspect]
     Indication: SKIN ULCER
     Dosage: 500 MILLIGRAM DAILY;
     Route: 048
     Dates: start: 20120914, end: 20120922
  2. TRUXAL [Suspect]
     Dosage: 40 - 90 MG/D
     Route: 048
     Dates: start: 20120915, end: 20120921
  3. TRUXAL [Suspect]
     Dosage: 60 MILLIGRAM DAILY;
     Route: 048
     Dates: start: 20120922
  4. TAVOR [Suspect]
     Dosage: 3 MILLIGRAM DAILY;
     Route: 048
     Dates: start: 20120914, end: 20120919
  5. TAVOR [Suspect]
     Dosage: 2 MILLIGRAM DAILY;
     Route: 048
     Dates: start: 20120920, end: 20120922
  6. ZYPREXA [Suspect]
     Dosage: 5 MILLIGRAM DAILY;
     Route: 048
     Dates: start: 20120917, end: 20120920
  7. ZYPREXA [Suspect]
     Dosage: 10 MILLIGRAM DAILY;
     Route: 048
     Dates: start: 20120921, end: 20120922
  8. RAMIPRIL [Concomitant]
     Dosage: 2.5 MILLIGRAM DAILY;
     Route: 048
     Dates: end: 20120922
  9. BISOPROLOL [Concomitant]
     Dosage: 2.5 MILLIGRAM DAILY;
     Route: 048
     Dates: end: 20120913
  10. BISOPROLOL [Concomitant]
     Dosage: 5 MILLIGRAM DAILY;
     Route: 048
     Dates: start: 20120914, end: 20120922
  11. ALLOPURINOL [Concomitant]
     Dosage: 150 MILLIGRAM DAILY;
     Route: 048
     Dates: end: 20120922
  12. OMEPRAZOL [Concomitant]
     Dosage: 20 MILLIGRAM DAILY;
     Route: 048
     Dates: end: 20120911
  13. PANTOPRAZOL [Concomitant]
     Dosage: 20 MILLIGRAM DAILY;
     Route: 048
     Dates: start: 20120912, end: 20120922
  14. METAMIZOL [Concomitant]
     Dosage: 1500 MILLIGRAM DAILY;
     Route: 048
     Dates: end: 20120922
  15. ACETYLSALICYLSAEURE [Concomitant]
     Dosage: 100 MILLIGRAM DAILY;
     Route: 048
     Dates: end: 20120922
  16. INSULIN [Concomitant]
     Dosage: 18 IU (INTERNATIONAL UNIT) DAILY;
     Route: 058
     Dates: end: 20120922
  17. FUROSEMID [Concomitant]
     Dosage: 80 MILLIGRAM DAILY;
     Route: 048
     Dates: end: 20120911
  18. FUROSEMID [Concomitant]
     Dosage: 120 MILLIGRAM DAILY;
     Route: 048
     Dates: start: 20120912, end: 20120922

REACTIONS (2)
  - Death [Fatal]
  - Drug interaction [Unknown]
